FAERS Safety Report 16944563 (Version 6)
Quarter: 2021Q3

REPORT INFORMATION
  Report Type: Report from Study
  Country: GB (occurrence: GB)
  Receive Date: 20191022
  Receipt Date: 20210723
  Transmission Date: 20211014
  Serious: Yes (Hospitalization)
  Sender: FDA-Public Use
  Company Number: NVSC2019GB011440

PATIENT
  Age: 69 Year
  Sex: Female
  Weight: 77.2 kg

DRUGS (15)
  1. LETROZOLE. [Concomitant]
     Active Substance: LETROZOLE
     Indication: BREAST CANCER METASTATIC
     Dosage: 2.5 MG
     Route: 065
     Dates: start: 20190504
  2. PARACETAMOL [Concomitant]
     Active Substance: ACETAMINOPHEN
     Indication: PYREXIA
     Dosage: UNK
     Route: 065
     Dates: start: 20190823
  3. OMEPRAZOLE. [Concomitant]
     Active Substance: OMEPRAZOLE
     Indication: HIATUS HERNIA
     Dosage: UNK
     Route: 065
     Dates: start: 20181130
  4. DALTEPARIN [Concomitant]
     Active Substance: DALTEPARIN
     Indication: PROPHYLAXIS
     Dosage: UNK
     Route: 065
     Dates: start: 20190823, end: 20190902
  5. SYMBICORT [Concomitant]
     Active Substance: BUDESONIDE\FORMOTEROL FUMARATE DIHYDRATE
     Indication: ASTHMA
     Dosage: UNK
     Route: 065
     Dates: start: 20051220
  6. VISCOTEARS [Concomitant]
     Active Substance: CARBOMER
     Indication: DRY EYE
     Dosage: UNK
     Route: 065
     Dates: start: 20180430
  7. ADCAL D3 [Concomitant]
     Active Substance: CALCIUM CARBONATE\CHOLECALCIFEROL
     Indication: PROPHYLAXIS
     Dosage: UNK
     Route: 065
     Dates: start: 20190726
  8. KISQALI [Suspect]
     Active Substance: RIBOCICLIB
     Indication: BREAST CANCER METASTATIC
     Dosage: 600 MG
     Route: 048
     Dates: start: 20190504, end: 20190823
  9. ORAMORPH [Concomitant]
     Active Substance: MORPHINE SULFATE
     Indication: BACK PAIN
     Dosage: UNK
     Route: 065
     Dates: start: 20190501
  10. MONTELUKAST [Concomitant]
     Active Substance: MONTELUKAST SODIUM
     Indication: ASTHMA
     Dosage: UNK
     Route: 065
     Dates: start: 20051221
  11. CETIRIZINE [Concomitant]
     Active Substance: CETIRIZINE HYDROCHLORIDE
     Indication: RHINITIS
     Dosage: UNK
     Route: 065
     Dates: start: 20181005
  12. NORMAL SALINE [Concomitant]
     Active Substance: SODIUM CHLORIDE
     Indication: DEHYDRATION
     Dosage: UNK
     Route: 065
     Dates: start: 20190823, end: 20190828
  13. MORPHINE SULPHATE [Concomitant]
     Active Substance: MORPHINE SULFATE
     Indication: BACK PAIN
     Dosage: UNK
     Route: 065
     Dates: start: 20190501
  14. KISQALI [Suspect]
     Active Substance: RIBOCICLIB
     Dosage: 600 MG
     Route: 048
     Dates: start: 20190921, end: 20191202
  15. SALBUTAMOL [Concomitant]
     Active Substance: ALBUTEROL
     Indication: ASTHMA
     Dosage: UNK
     Route: 065
     Dates: start: 20051209

REACTIONS (2)
  - Cellulitis [Recovered/Resolved]
  - Sepsis [Recovered/Resolved]

NARRATIVE: CASE EVENT DATE: 20190929
